FAERS Safety Report 7236549-6 (Version None)
Quarter: 2011Q1

REPORT INFORMATION
  Report Type: 
  Country: None (occurrence: None)
  Receive Date: 20110120
  Receipt Date: 20110113
  Transmission Date: 20110831
  Serious: Yes (Other)
  Sender: FDA-Public Use
  Company Number: US-PURDUE-USA-2011-0062397

PATIENT
  Sex: Male
  Weight: 92.971 kg

DRUGS (1)
  1. OXYCONTIN [Suspect]
     Indication: PRODUCT USED FOR UNKNOWN INDICATION
     Dosage: 40 MG, BID
     Route: 048
     Dates: start: 20100801

REACTIONS (3)
  - PRODUCT QUALITY ISSUE [None]
  - SUICIDAL IDEATION [None]
  - SOMNOLENCE [None]
